FAERS Safety Report 11334426 (Version 1)
Quarter: 2015Q3

REPORT INFORMATION
  Report Type: Spontaneous
  Country: US (occurrence: US)
  Receive Date: 20150804
  Receipt Date: 20150804
  Transmission Date: 20151125
  Serious: Yes (Other)
  Sender: FDA-Public Use
  Company Number: US-ROCHE-1617316

PATIENT
  Sex: Female
  Weight: 47.67 kg

DRUGS (1)
  1. ESBRIET [Suspect]
     Active Substance: PIRFENIDONE
     Indication: IDIOPATHIC PULMONARY FIBROSIS
     Dosage: ONE 267 MG CAPSULE, THRICE A DAY
     Route: 048

REACTIONS (2)
  - Headache [Unknown]
  - Liver function test abnormal [Unknown]
